FAERS Safety Report 24321345 (Version 2)
Quarter: 2024Q4

REPORT INFORMATION
  Report Type: Report from Study
  Country: ZA (occurrence: ZA)
  Receive Date: 20240916
  Receipt Date: 20241209
  Transmission Date: 20250115
  Serious: Yes (Other)
  Sender: ALEXION PHARMACEUTICALS
  Company Number: 2024A205422

PATIENT
  Age: 57 Year

DRUGS (22)
  1. BUDESONIDE\FORMOTEROL [Suspect]
     Active Substance: BUDESONIDE\FORMOTEROL
     Indication: Asthma
     Dosage: 160/4.5 MCG, UNKNOWN, FREQUENCY: UNK
  2. BUDESONIDE\FORMOTEROL [Suspect]
     Active Substance: BUDESONIDE\FORMOTEROL
     Dosage: 160/4.5 MCG, UNKNOWN, FREQUENCY: UNK
  3. BUDESONIDE\FORMOTEROL [Suspect]
     Active Substance: BUDESONIDE\FORMOTEROL
     Dosage: 160/4.5 MCG, UNKNOWN, FREQUENCY: UNK
  4. BUDESONIDE\FORMOTEROL [Suspect]
     Active Substance: BUDESONIDE\FORMOTEROL
     Dosage: 160/4.5 MCG, UNKNOWN, FREQUENCY: UNK
  5. PANTOCID [Concomitant]
     Indication: Ulcer
     Dosage: 40 MILLIGRAM, UNK
     Route: 048
  6. PANTOCID [Concomitant]
     Dosage: 40 MILLIGRAM, UNK
  7. ESCITALOPRAM [Concomitant]
     Active Substance: ESCITALOPRAM OXALATE
     Indication: Depression
     Dosage: 20 MILLIGRAM, UNK
     Route: 048
  8. ESCITALOPRAM [Concomitant]
     Active Substance: ESCITALOPRAM OXALATE
     Dosage: 20 MILLIGRAM, UNK
  9. ROSUVASTATIN [Concomitant]
     Active Substance: ROSUVASTATIN
     Indication: Blood cholesterol
     Dosage: 10 MILLIGRAM, UNK
     Route: 048
  10. ROSUVASTATIN [Concomitant]
     Active Substance: ROSUVASTATIN
     Dosage: 10 MILLIGRAM, UNK
  11. TOPRAZ [Concomitant]
     Indication: Asthma
     Dosage: 10 MILLIGRAM, UNK
     Route: 048
  12. TOPRAZ [Concomitant]
     Dosage: 10 MILLIGRAM, UNK
  13. UNSPECIFIED INGREDIENT [Concomitant]
     Active Substance: UNSPECIFIED INGREDIENT
     Dosage: 50 MILLIGRAM, UNK
     Route: 048
  14. UNSPECIFIED INGREDIENT [Concomitant]
     Active Substance: UNSPECIFIED INGREDIENT
     Dosage: 50 MILLIGRAM, UNK
  15. EURODRON [Concomitant]
     Indication: Neoplasm malignant
     Dosage: 4 MILLIGRAM, UNK
     Route: 058
  16. EURODRON [Concomitant]
     Dosage: 4 MILLIGRAM, UNK
  17. XTANDI [Concomitant]
     Active Substance: ENZALUTAMIDE
     Indication: Neoplasm malignant
     Dosage: 40 MILLIGRAM, UNK
     Route: 048
  18. XTANDI [Concomitant]
     Active Substance: ENZALUTAMIDE
     Dosage: 40 MILLIGRAM, UNK
  19. LOSARTAN POTASSIUM [Concomitant]
     Active Substance: LOSARTAN POTASSIUM
     Indication: Hypertension
     Dosage: 50 MILLIGRAM, UNK
     Route: 048
  20. LOSARTAN POTASSIUM [Concomitant]
     Active Substance: LOSARTAN POTASSIUM
     Dosage: 50 MILLIGRAM, UNK
  21. TRAMAZAC [Concomitant]
     Indication: Pain
     Dosage: 50 MILLIGRAM, UNK
     Route: 048
  22. TRAMAZAC [Concomitant]
     Dosage: 50 MILLIGRAM, UNK

REACTIONS (1)
  - Neoplasm malignant [Unknown]
